FAERS Safety Report 19133561 (Version 1)
Quarter: 2021Q2

REPORT INFORMATION
  Report Type: Spontaneous
  Country: US (occurrence: US)
  Receive Date: 20210414
  Receipt Date: 20210414
  Transmission Date: 20210717
  Serious: Yes (Hospitalization)
  Sender: FDA-Public Use
  Company Number: None

PATIENT
  Age: 54 Year
  Sex: Female
  Weight: 82.4 kg

DRUGS (1)
  1. ASPIRIN 33000 MG [Suspect]
     Active Substance: ASPIRIN
     Dates: end: 20210222

REACTIONS (1)
  - Supraventricular tachycardia [None]

NARRATIVE: CASE EVENT DATE: 20210311
